FAERS Safety Report 16660155 (Version 1)
Quarter: 2019Q3

REPORT INFORMATION
  Report Type: Spontaneous
  Country: CA (occurrence: CA)
  Receive Date: 20190802
  Receipt Date: 20190802
  Transmission Date: 20191004
  Serious: Yes (Hospitalization)
  Sender: FDA-Public Use
  Company Number: CA-009507513-1907CAN016847

PATIENT
  Age: 77 Year
  Sex: Male
  Weight: 98 kg

DRUGS (2)
  1. FUROSEMIDE. [Concomitant]
     Active Substance: FUROSEMIDE
     Route: 065
  2. JANUVIA [Suspect]
     Active Substance: SITAGLIPTIN PHOSPHATE
     Indication: DIABETES MELLITUS
     Dosage: 100 MILLIGRAM, 1 EVERY 1 DAY(S)
     Route: 048

REACTIONS (3)
  - Peau d^orange [Recovering/Resolving]
  - Pruritus [Recovering/Resolving]
  - Pemphigoid [Recovering/Resolving]
